FAERS Safety Report 8885441 (Version 6)
Quarter: 2014Q2

REPORT INFORMATION
  Report Type: Spontaneous
  Country: US (occurrence: US)
  Receive Date: 20121101
  Receipt Date: 20140618
  Transmission Date: 20141212
  Serious: Yes (Hospitalization, Disabling, Other)
  Sender: FDA-Public Use
  Company Number: US-009507513-1210USA010233

PATIENT
  Sex: Female
  Weight: 65.76 kg

DRUGS (10)
  1. FOSAMAX [Suspect]
     Indication: MENOPAUSE
     Dosage: 70 MG, QW
     Route: 048
     Dates: end: 20060516
  2. FOSAMAX [Suspect]
     Indication: OSTEOPOROSIS
     Dosage: UNK
     Route: 048
     Dates: start: 1996
  3. FOSAMAX [Suspect]
     Indication: OSTEOPENIA
  4. FOSAMAX PLUS D [Suspect]
     Indication: MENOPAUSE
     Dosage: 70 MG, QW
     Route: 048
     Dates: start: 20060516, end: 20061228
  5. FOSAMAX PLUS D [Suspect]
     Indication: OSTEOPOROSIS
  6. FOSAMAX PLUS D [Suspect]
     Indication: OSTEOPENIA
  7. VITAMINS (UNSPECIFIED) [Concomitant]
     Dosage: UNK UNK, QD
     Dates: start: 1997
  8. CALCIUM (UNSPECIFIED) (+) VITAMIN D (UNSPECIFIED) [Concomitant]
     Dosage: 1000 MG, QD
     Dates: start: 1997
  9. CYANOCOBALAMIN [Concomitant]
     Dosage: 15 MG, QD
     Dates: start: 1997
  10. ASCORBIC ACID [Concomitant]
     Dosage: 150 MG, QD
     Dates: start: 1997

REACTIONS (23)
  - Intramedullary rod insertion [Unknown]
  - Femur fracture [Unknown]
  - Osteoporosis [Unknown]
  - Stress fracture [Unknown]
  - Low turnover osteopathy [Unknown]
  - Femur fracture [Recovered/Resolved]
  - Fall [Unknown]
  - Vitamin D deficiency [Unknown]
  - Adverse event [Unknown]
  - Adverse event [Unknown]
  - Adverse event [Unknown]
  - Adverse event [Unknown]
  - Hyperchlorhydria [Unknown]
  - Infection [Unknown]
  - Adverse event [Unknown]
  - Cough [Unknown]
  - Hypertriglyceridaemia [Unknown]
  - Diverticulitis [Unknown]
  - Osteitis deformans [Unknown]
  - Pain in extremity [Unknown]
  - Gastrooesophageal reflux disease [Unknown]
  - Off label use [Unknown]
  - Off label use [Unknown]
